FAERS Safety Report 14046563 (Version 1)
Quarter: 2017Q4

REPORT INFORMATION
  Report Type: Spontaneous
  Country: FR (occurrence: FR)
  Receive Date: 20171005
  Receipt Date: 20171005
  Transmission Date: 20180321
  Serious: Yes (Hospitalization, Other)
  Sender: FDA-Public Use
  Company Number: FR-PFIZER INC-2017420407

PATIENT
  Age: 60 Year
  Sex: Female

DRUGS (4)
  1. AROMASINE [Suspect]
     Active Substance: EXEMESTANE
     Indication: BREAST CANCER
     Dosage: 25 MG, 1X/DAY
     Route: 048
     Dates: start: 201612
  2. ESOMEPRAZOLE [Concomitant]
     Active Substance: ESOMEPRAZOLE
     Dosage: UNK
  3. ACETYLLEUCINE [Concomitant]
     Active Substance: ACETYLLEUCINE
     Dosage: 1000 MG, 2X/DAY
  4. ATENOLOL. [Concomitant]
     Active Substance: ATENOLOL
     Dosage: 50 MG, 1X/DAY

REACTIONS (6)
  - Transient ischaemic attack [Unknown]
  - Hemiparesis [Recovered/Resolved]
  - Paroxysmal arrhythmia [Unknown]
  - Headache [Recovered/Resolved]
  - Vision blurred [Recovered/Resolved]
  - Migraine with aura [Unknown]

NARRATIVE: CASE EVENT DATE: 2017
